FAERS Safety Report 7829788-4 (Version None)
Quarter: 2011Q4

REPORT INFORMATION
  Report Type: 
  Country: None (occurrence: None)
  Receive Date: 20111018
  Receipt Date: 20111006
  Transmission Date: 20120403
  Serious: Yes (Hospitalization)
  Sender: FDA-Public Use
  Company Number: 2011AP002338

PATIENT
  Age: 75 Year
  Sex: Male

DRUGS (3)
  1. AMLODIPINE [Suspect]
     Indication: FEELING COLD
     Dosage: 5 MG; PO; QD
     Route: 048
     Dates: start: 20110601, end: 20110923
  2. ASPIRIN [Concomitant]
  3. LOSARTAN POTASSIUM [Concomitant]

REACTIONS (5)
  - URINE ODOUR ABNORMAL [None]
  - MYOPATHY [None]
  - URINE COLOUR ABNORMAL [None]
  - GAIT DISTURBANCE [None]
  - WHITE BLOOD CELLS URINE POSITIVE [None]
